FAERS Safety Report 16094278 (Version 1)
Quarter: 2019Q1

REPORT INFORMATION
  Report Type: Spontaneous
  Country: US (occurrence: US)
  Receive Date: 20190320
  Receipt Date: 20190320
  Transmission Date: 20190418
  Serious: Yes (Hospitalization)
  Sender: FDA-Public Use
  Company Number: US-SA-2019SA073359

PATIENT
  Weight: 72.27 kg

DRUGS (3)
  1. AMBIEN [Suspect]
     Active Substance: ZOLPIDEM TARTRATE
  2. GABAPENTIN. [Suspect]
     Active Substance: GABAPENTIN
     Dosage: 200 MG, HS
  3. VENLAFAXINE HYDROCHLORIDE. [Suspect]
     Active Substance: VENLAFAXINE HYDROCHLORIDE

REACTIONS (14)
  - Abdominal discomfort [Unknown]
  - Dyspnoea [Unknown]
  - Pain [Unknown]
  - Skin ulcer [Unknown]
  - Cough [Unknown]
  - Rash [Unknown]
  - Insomnia [Unknown]
  - Facial paresis [Unknown]
  - Pyrexia [Unknown]
  - Pleural effusion [Unknown]
  - Dizziness [Unknown]
  - Ischaemia [Unknown]
  - Diarrhoea [Recovered/Resolved]
  - Malaise [Unknown]
